FAERS Safety Report 4435947-3 (Version None)
Quarter: 2004Q3

REPORT INFORMATION
  Report Type: 
  Country: None (occurrence: None)
  Receive Date: 20040726
  Receipt Date: 20040503
  Transmission Date: 20050211
  Serious: No
  Sender: FDA-Public Use
  Company Number: USA040360522

PATIENT
  Age: 90 Year
  Sex: Female
  Weight: 68 kg

DRUGS (8)
  1. FORTEO [Suspect]
     Indication: OSTEOPOROSIS
     Dosage: 20 UG DAY
     Dates: start: 20040217, end: 20040101
  2. HUMULIN 70/30 [Suspect]
     Indication: DIABETES MELLITUS
     Dates: start: 19900101
  3. PLENDIL [Concomitant]
  4. NEURONTIN [Concomitant]
  5. POTASSIUM [Concomitant]
  6. LEVOXYL [Concomitant]
  7. VITAMINS NOS [Concomitant]
  8. LORTAB [Concomitant]

REACTIONS (7)
  - BONE PAIN [None]
  - DIZZINESS [None]
  - NERVOUSNESS [None]
  - NODDING OF HEAD [None]
  - POSTURE ABNORMAL [None]
  - SPINAL FRACTURE [None]
  - TREMOR [None]
